FAERS Safety Report 8923250 (Version 1)
Quarter: 2012Q4

REPORT INFORMATION
  Report Type: 
  Country: GB (occurrence: GB)
  Receive Date: 20121124
  Receipt Date: 20121124
  Transmission Date: 20130627
  Serious: Yes (Hospitalization, Other)
  Sender: FDA-Public Use
  Company Number: PHHY2012GB106724

PATIENT
  Age: 16 Year
  Sex: Male
  Weight: 66 kg

DRUGS (25)
  1. DOXORUBICIN [Suspect]
     Indication: RHABDOMYOSARCOMA
     Dosage: 60 mg, UNK
     Route: 042
     Dates: start: 20100618
  2. VINCRISTINE [Suspect]
     Indication: RHABDOMYOSARCOMA
     Dosage: 2 mg, UNK
     Route: 042
     Dates: start: 20100618
  3. IFOSFAMIDE [Suspect]
     Indication: RHABDOMYOSARCOMA
     Dosage: 6 g, UNK
     Route: 042
     Dates: start: 20100618
  4. ACTINOMYCIN D [Suspect]
     Indication: RHABDOMYOSARCOMA
     Dosage: 2 mg, UNK
     Route: 042
     Dates: start: 20100618
  5. LEVOMEPROMAZINE [Concomitant]
     Dosage: 6 mg, UNK
  6. METOCLOPRAMIDE [Concomitant]
     Dosage: 30 mg, UNK
  7. OMEPRAZOLE [Concomitant]
     Dosage: 20 mg, UNK
  8. FLUCONAZOLE [Concomitant]
     Dosage: 150 mg, UNK
  9. ACETAMINOPHEN [Concomitant]
     Dosage: 4 g, UNK
  10. FENTANYL CITRATE [Concomitant]
     Dosage: 50 ug, UNK
  11. SANDOL P [Concomitant]
     Dosage: UNK
  12. DEXAMETHASONE [Concomitant]
     Dosage: 24 mg, UNK
  13. MAGNESIUM ASPARTATE [Concomitant]
     Dosage: 20 mmol, UNK
  14. PHOSPHATE-SANDOZ [Concomitant]
  15. AMITRIPTYLINE HYDROCHLORIDE [Concomitant]
     Dosage: 25 mg, UNK
  16. SEVREDOL [Concomitant]
     Dosage: 20 mg, UNK
  17. GABAPENTIN [Concomitant]
     Dosage: 1500 mg, UNK
  18. GRANISETRON [Concomitant]
     Dosage: 1 mg, UNK
  19. CALCIUM CARBONATE [Concomitant]
     Dosage: 2.5 g, UNK
  20. TAZOCIN [Concomitant]
     Dosage: 18 g, UNK
  21. CO-TRIMOXAZOLE [Concomitant]
     Dosage: 960 mg, UNK
  22. SENNA [Concomitant]
     Dosage: 15 mg, UNK
  23. ONDANSETRON [Concomitant]
     Dosage: 24 mg, UNK
  24. LACTULOSE [Concomitant]
     Dosage: 15 mg, UNK
  25. NABILONE [Concomitant]
     Dosage: 3 mg, UNK

REACTIONS (4)
  - Presyncope [Recovered/Resolved]
  - Febrile neutropenia [Recovered/Resolved]
  - Haemoglobin decreased [Recovering/Resolving]
  - Platelet count decreased [Unknown]
